FAERS Safety Report 6008438-6 (Version None)
Quarter: 2008Q4

REPORT INFORMATION
  Report Type: 
  Country: None (occurrence: None)
  Receive Date: 20081217
  Receipt Date: 20080507
  Transmission Date: 20090506
  Serious: Yes (Other)
  Sender: FDA-Public Use
  Company Number: US-BAXTER-2008BH010448

PATIENT
  Sex: Male

DRUGS (16)
  1. GAMMAGARD LIQUID [Suspect]
     Indication: DEMYELINATING POLYNEUROPATHY
     Route: 042
     Dates: start: 20000101
  2. IVEEGAM [Suspect]
     Indication: DEMYELINATING POLYNEUROPATHY
     Route: 042
     Dates: start: 20000101
  3. POLYGAM S/D [Suspect]
     Indication: DEMYELINATING POLYNEUROPATHY
     Route: 042
     Dates: start: 20000101
  4. CARIMUNE NF [Suspect]
     Indication: DEMYELINATING POLYNEUROPATHY
     Route: 042
     Dates: start: 20000101
  5. FLEBOGAMMA [Suspect]
     Indication: DEMYELINATING POLYNEUROPATHY
     Route: 042
     Dates: start: 20000101
  6. GAMIMUNE N [Suspect]
     Indication: DEMYELINATING POLYNEUROPATHY
     Route: 042
     Dates: start: 20000101
  7. GAMMAR-P I.V. [Suspect]
     Indication: DEMYELINATING POLYNEUROPATHY
     Route: 042
     Dates: start: 20000101
  8. GAMUNEX [Suspect]
     Indication: DEMYELINATING POLYNEUROPATHY
     Route: 042
     Dates: start: 20000101
  9. OCTAGAM [Suspect]
     Indication: DEMYELINATING POLYNEUROPATHY
     Route: 042
     Dates: start: 20000101
  10. PANGLOBULIN [Suspect]
     Indication: DEMYELINATING POLYNEUROPATHY
     Route: 042
     Dates: start: 20000101
  11. SANDOGLOBULIN [Suspect]
     Indication: DEMYELINATING POLYNEUROPATHY
     Route: 042
     Dates: start: 20000101
  12. ACETAMINOPHEN [Concomitant]
     Indication: PREMEDICATION
     Route: 065
  13. DIPHENHYDRAMINE HCL [Concomitant]
     Indication: PREMEDICATION
     Route: 065
  14. HYDROCORTISONE [Concomitant]
     Indication: PREMEDICATION
     Route: 065
  15. HYDROCORTISONE [Concomitant]
     Route: 065
  16. PREDNISONE TAB [Concomitant]
     Indication: PREMEDICATION
     Route: 065

REACTIONS (2)
  - DRUG INTOLERANCE [None]
  - MYOCARDIAL ISCHAEMIA [None]
